FAERS Safety Report 6540472-X (Version None)
Quarter: 2010Q1

REPORT INFORMATION
  Report Type: 
  Country: None (occurrence: None)
  Receive Date: 20100113
  Receipt Date: 20100104
  Transmission Date: 20100710
  Serious: Yes (Other)
  Sender: FDA-Public Use
  Company Number: 1000011208

PATIENT
  Age: 62 Year
  Sex: Female

DRUGS (2)
  1. ESCITALOPRAM [Suspect]
     Indication: DEPRESSION
     Dosage: 20 MG (10 MG, 2 IN 1 D), ORAL
     Route: 048
  2. ESCITALOPRAM [Suspect]
     Indication: DEPRESSION
     Dosage: 10 MG (10 MG, `1 IN 1 D),ORAL
     Route: 048

REACTIONS (3)
  - ANXIETY [None]
  - ARRHYTHMIA [None]
  - MALAISE [None]
